FAERS Safety Report 17132928 (Version 1)
Quarter: 2019Q4

REPORT INFORMATION
  Report Type: Spontaneous
  Country: JP (occurrence: JP)
  Receive Date: 20191210
  Receipt Date: 20191210
  Transmission Date: 20200122
  Serious: Yes (Other)
  Sender: FDA-Public Use
  Company Number: JP-ABBVIE-19K-087-3182584-00

PATIENT
  Age: 76 Year
  Sex: Female

DRUGS (2)
  1. EDOXABAN TOSILATE HYDRATE [Concomitant]
     Active Substance: EDOXABAN TOSYLATE
     Indication: PRODUCT USED FOR UNKNOWN INDICATION
     Dates: end: 20191202
  2. DUODOPA [Suspect]
     Active Substance: CARBIDOPA\LEVODOPA
     Indication: PRODUCT USED FOR UNKNOWN INDICATION
     Route: 050

REACTIONS (3)
  - Gastric haemorrhage [Recovered/Resolved]
  - Intra-abdominal haematoma [Unknown]
  - Puncture site swelling [Unknown]

NARRATIVE: CASE EVENT DATE: 201912
